FAERS Safety Report 6596390-4 (Version None)
Quarter: 2010Q1

REPORT INFORMATION
  Report Type: 
  Country: None (occurrence: None)
  Receive Date: 20100223
  Receipt Date: 20100217
  Transmission Date: 20100710
  Serious: Yes (Other)
  Sender: FDA-Public Use
  Company Number: PHEH2008US01022

PATIENT
  Sex: Male

DRUGS (10)
  1. ELIDEL [Suspect]
     Dosage: UNK
     Route: 061
     Dates: start: 20030328
  2. CHEMOTHERAPEUTICS NOS [Concomitant]
  3. BIOTENE [Concomitant]
  4. NYSTATIN [Concomitant]
  5. DOCUSATE [Concomitant]
  6. MIRALAX [Concomitant]
  7. NEUPOGEN [Concomitant]
     Dosage: UNK
     Dates: start: 20050426
  8. LORAZEPAM [Concomitant]
  9. AMOXICILLIN [Concomitant]
  10. AUGMENTIN                               /SCH/ [Concomitant]

REACTIONS (24)
  - ABDOMINAL PAIN [None]
  - AGGRESSION [None]
  - ALOPECIA [None]
  - CERUMEN REMOVAL [None]
  - CONSTIPATION [None]
  - CONTUSION [None]
  - DECREASED APPETITE [None]
  - EAR PAIN [None]
  - ECZEMA [None]
  - EPISTAXIS [None]
  - GASTROINTESTINAL TUBE INSERTION [None]
  - LARYNGOSCOPY [None]
  - LYMPHADENOPATHY [None]
  - MUCOSAL INFLAMMATION [None]
  - NECK MASS [None]
  - NIGHT SWEATS [None]
  - PAIN IN JAW [None]
  - PANCYTOPENIA [None]
  - PHARYNGITIS [None]
  - PHARYNGITIS STREPTOCOCCAL [None]
  - PRURITUS [None]
  - RADIATION SKIN INJURY [None]
  - RHABDOMYOSARCOMA [None]
  - SCOLIOSIS [None]
